FAERS Safety Report 17858198 (Version 7)
Quarter: 2022Q1

REPORT INFORMATION
  Report Type: Spontaneous
  Country: PL (occurrence: PL)
  Receive Date: 20200604
  Receipt Date: 20220103
  Transmission Date: 20220423
  Serious: Yes (Life-Threatening, Hospitalization, Other)
  Sender: FDA-Public Use
  Company Number: None

PATIENT
  Age: 74 Year
  Sex: Male

DRUGS (19)
  1. KETOPROFEN [Interacting]
     Active Substance: KETOPROFEN
     Indication: Headache
     Dosage: UNK (EVERY)
     Route: 065
  2. OMEPRAZOLE [Interacting]
     Active Substance: OMEPRAZOLE
     Indication: Prophylaxis
     Dosage: 40 MG, QD (AT BED TIME)
     Route: 048
  3. ACETAMINOPHEN [Interacting]
     Active Substance: ACETAMINOPHEN
     Indication: Headache
     Dosage: UNK
     Route: 065
  4. RIVAROXABAN [Interacting]
     Active Substance: RIVAROXABAN
     Indication: Atrial fibrillation
     Dosage: 20 MG QD (TOTAL)
     Route: 065
  5. RIVAROXABAN [Interacting]
     Active Substance: RIVAROXABAN
     Dosage: 200 MG, QD
     Route: 065
  6. AGOMELATINE [Interacting]
     Active Substance: AGOMELATINE
     Indication: Anhedonia
     Dosage: 25 MG, QD (AT BEDTIME )
     Route: 048
  7. AGOMELATINE [Interacting]
     Active Substance: AGOMELATINE
     Indication: Depression
  8. AZITHROMYCIN [Suspect]
     Active Substance: AZITHROMYCIN
     Indication: COVID-19
     Dosage: 500 MG (A SINGLE 500 DOSE)
     Route: 065
  9. METAMIZOLE [Interacting]
     Active Substance: METAMIZOLE
     Indication: Headache
     Dosage: UNK (EVERY)
     Route: 065
  10. AMIODARONE [Interacting]
     Active Substance: AMIODARONE
     Indication: Atrial fibrillation
     Dosage: 200 MG, QD
     Route: 042
  11. AMIODARONE [Interacting]
     Active Substance: AMIODARONE
     Indication: Ventricular tachycardia
  12. OSELTAMIVIR [Suspect]
     Active Substance: OSELTAMIVIR
     Indication: COVID-19
     Dosage: 75 MG (A SINGLE 75 MG DOSE)
     Route: 065
  13. PROPRANOLOL [Interacting]
     Active Substance: PROPRANOLOL HYDROCHLORIDE
     Indication: Atrial fibrillation
     Dosage: (10 MG,BID, 2X10 MG/DAY)
     Route: 065
  14. IBUPROFEN [Interacting]
     Active Substance: IBUPROFEN
     Indication: Headache
     Dosage: UNK
     Route: 065
  15. CIPROFLOXACIN [Interacting]
     Active Substance: CIPROFLOXACIN
     Indication: Urinary tract infection
     Dosage: 500 MG, QD AT BED TIME
     Route: 065
  16. CIPROFLOXACIN [Interacting]
     Active Substance: CIPROFLOXACIN
     Indication: Bacteriuria
  17. POTASSIUM CHLORIDE [Suspect]
     Active Substance: POTASSIUM CHLORIDE
     Indication: Atrial fibrillation
     Dosage: UNK
     Route: 042
  18. METOPROLOL [Concomitant]
     Active Substance: METOPROLOL
     Indication: Ventricular tachycardia
     Dosage: (INITIALLY USED IV- THEN ORALLY)
     Route: 042
  19. METOPROLOL [Concomitant]
     Active Substance: METOPROLOL
     Dosage: 200 MG (2 TAB OF MP 100MG)
     Route: 048

REACTIONS (21)
  - Diarrhoea [Recovered/Resolved]
  - Asthenia [Recovered/Resolved]
  - Hyperhidrosis [Recovered/Resolved]
  - Pain [Recovered/Resolved]
  - Tachycardia [Recovered/Resolved]
  - Abdominal pain [Recovered/Resolved]
  - Drug interaction [Unknown]
  - Drug ineffective [Unknown]
  - Product use in unapproved indication [Unknown]
  - Headache [Recovered/Resolved]
  - Blood sodium decreased [Recovered/Resolved]
  - Alanine aminotransferase increased [Recovered/Resolved]
  - Abdominal pain upper [Recovered/Resolved]
  - Fatigue [Recovered/Resolved]
  - Blood potassium decreased [Recovered/Resolved]
  - Condition aggravated [Unknown]
  - Contraindicated product administered [Unknown]
  - Depression [Recovered/Resolved]
  - Anhedonia [Recovered/Resolved]
  - Intentional product misuse [Unknown]
  - Off label use [Unknown]

NARRATIVE: CASE EVENT DATE: 20190101
